FAERS Safety Report 5320753-8 (Version None)
Quarter: 2007Q2

REPORT INFORMATION
  Report Type: 
  Country: None (occurrence: None)
  Receive Date: 20070509
  Receipt Date: 20070501
  Transmission Date: 20071010
  Serious: Yes (Other)
  Sender: FDA-Public Use
  Company Number: US-PFIZER INC-2007035737

PATIENT
  Sex: Male
  Weight: 81.6 kg

DRUGS (8)
  1. VIAGRA [Suspect]
     Indication: ERECTILE DYSFUNCTION
     Dosage: DAILY DOSE:50MG
  2. FUROSEMIDE [Interacting]
     Indication: FLUID RETENTION
  3. MICARDIS [Interacting]
     Indication: HEART VALVE INSUFFICIENCY
  4. MIRAPEX [Concomitant]
  5. LIPITOR [Concomitant]
  6. VITAMIN E [Concomitant]
  7. NIACIN [Concomitant]
  8. AMBIEN [Concomitant]

REACTIONS (5)
  - DRUG INEFFECTIVE [None]
  - DRUG INTERACTION [None]
  - FLUID RETENTION [None]
  - HEART VALVE INSUFFICIENCY [None]
  - WEIGHT INCREASED [None]
